FAERS Safety Report 16908589 (Version 1)
Quarter: 2019Q4

REPORT INFORMATION
  Report Type: Spontaneous
  Country: DE (occurrence: DE)
  Receive Date: 20191011
  Receipt Date: 20191011
  Transmission Date: 20200122
  Serious: Yes (Hospitalization, Other)
  Sender: FDA-Public Use
  Company Number: DE-009507513-1910DEU006472

PATIENT
  Age: 70 Year
  Sex: Male
  Weight: 114 kg

DRUGS (20)
  1. L-THYROXIN [Concomitant]
     Active Substance: LEVOTHYROXINE SODIUM
     Dosage: DAILY DOSE: 1 DOSAGE FORM EVERY DAYS
  2. CANDESARTAN. [Concomitant]
     Active Substance: CANDESARTAN
     Dosage: DAILY DOSE: 2 DOSAGE FORM EVERY DAYS 2 SEPARATED DOSES
  3. DEKRISTOL [Concomitant]
     Active Substance: CHOLECALCIFEROL
     Dosage: DAILY DOSE: 1 DOSAGE FORM EVERY WEEKS
  4. NOVAMINSULFON [Concomitant]
     Active Substance: METAMIZOLE
     Dosage: 500 MILLIGRAM
  5. OXYGESIC [Concomitant]
     Active Substance: OXYCODONE
     Dosage: 5 MILLIGRAM
  6. VICTOZA [Suspect]
     Active Substance: LIRAGLUTIDE
     Indication: TYPE 2 DIABETES MELLITUS
     Dosage: DAILY DOSE: 1.8 MG MILLGRAM(S) EVERY DAYS
     Route: 048
  7. JARDIANCE [Concomitant]
     Active Substance: EMPAGLIFLOZIN
     Indication: TYPE 2 DIABETES MELLITUS
     Dosage: DAILY DOSE: 10 MILLGRAM(S) EVERY DAYS
     Route: 048
  8. GLIMEPIRIDE. [Concomitant]
     Active Substance: GLIMEPIRIDE
     Indication: TYPE 2 DIABETES MELLITUS
     Dosage: DAILY DOSE: 4 MILLGRAM(S) EVERY DAYS, 2 SEPARATED DOSES
     Route: 048
  9. AMLODIPINE [Concomitant]
     Active Substance: AMLODIPINE BESYLATE
     Dosage: DAILY DOSE: 1 DOSAGE FORM EVERY DAYS
  10. ALLOPURINOL. [Concomitant]
     Active Substance: ALLOPURINOL
     Dosage: DAILY DOSE: 300 MILLGRAM(S) EVERY DAYS
  11. XELEVIA [Suspect]
     Active Substance: SITAGLIPTIN PHOSPHATE
     Indication: TYPE 2 DIABETES MELLITUS
     Dosage: DAILY DOSE: 50 MG MILLGRAM(S) EVERY DAYS
     Route: 048
  12. SPIRONOLACTONE. [Concomitant]
     Active Substance: SPIRONOLACTONE
     Dosage: UNK
     Dates: end: 20190413
  13. TORSEMIDE. [Concomitant]
     Active Substance: TORSEMIDE
     Dosage: DAILY DOSE: 20 MILLGRAM(S) EVERY DAYS
  14. BLOPRESS [Concomitant]
     Active Substance: CANDESARTAN CILEXETIL
     Dosage: DAILY DOSE: 2 DOSAGE FORM EVERY DAYS 2 SEPARATED DOSES
  15. VICTOZA [Concomitant]
     Active Substance: LIRAGLUTIDE
     Dosage: DAILY DOSE: 2 DOSAGE FORM EVERY DAYS 2 SEPARATED DOSES
  16. ASS 100 [Concomitant]
     Active Substance: ASPIRIN
     Dosage: DAILY DOSE: 1 DOSAGE FORM EVERY DAYS
  17. METOPROLOL. [Concomitant]
     Active Substance: METOPROLOL
     Dosage: DAILY DOSE: 1 DOSAGE FORM EVERY DAYS
  18. SERTRALINE HYDROCHLORIDE. [Concomitant]
     Active Substance: SERTRALINE HYDROCHLORIDE
     Dosage: DAILY DOSE: 50 MG MILLGRAM(S) EVERY DAYS
  19. OMEP [Concomitant]
     Active Substance: OMEPRAZOLE
     Dosage: DAILY DOSE: 2 DOSAGE FORM EVERY DAYS 2 SEPARATED DOSES
  20. ATORVASTATIN [Concomitant]
     Active Substance: ATORVASTATIN
     Dosage: DAILY DOSE: 1 DOSAGE FORM EVERY DAYS

REACTIONS (4)
  - Systemic inflammatory response syndrome [Recovering/Resolving]
  - Acute kidney injury [Recovering/Resolving]
  - Pancreatitis [Recovering/Resolving]
  - Subileus [Recovering/Resolving]

NARRATIVE: CASE EVENT DATE: 20190718
